FAERS Safety Report 9614106 (Version 4)
Quarter: 2014Q1

REPORT INFORMATION
  Report Type: Spontaneous
  Country: US (occurrence: US)
  Receive Date: 20131011
  Receipt Date: 20140123
  Transmission Date: 20141002
  Serious: No
  Sender: FDA-Public Use
  Company Number: US-BIOGENIDEC-2013BI081989

PATIENT
  Age: 49 Year
  Sex: Female

DRUGS (5)
  1. AVONEX [Suspect]
     Indication: MULTIPLE SCLEROSIS
     Route: 030
  2. AVONEX [Suspect]
     Indication: MULTIPLE SCLEROSIS
     Route: 030
     Dates: start: 20020131
  3. AVONEX [Suspect]
     Indication: MULTIPLE SCLEROSIS
     Route: 030
  4. AVONEX [Suspect]
     Indication: MULTIPLE SCLEROSIS
     Route: 030
     Dates: start: 20131001, end: 20131025
  5. AVONEX [Suspect]
     Indication: MULTIPLE SCLEROSIS
     Route: 030
     Dates: start: 20131101

REACTIONS (21)
  - Peripheral arterial occlusive disease [Not Recovered/Not Resolved]
  - Cellulitis [Not Recovered/Not Resolved]
  - Fear of injection [Unknown]
  - Bite [Unknown]
  - Dyskinesia [Not Recovered/Not Resolved]
  - Muscle twitching [Unknown]
  - Memory impairment [Recovered/Resolved]
  - Injection site haemorrhage [Recovered/Resolved]
  - Hypoaesthesia [Unknown]
  - Erythema [Unknown]
  - Dry mouth [Not Recovered/Not Resolved]
  - Joint swelling [Not Recovered/Not Resolved]
  - Rubber sensitivity [Recovered/Resolved]
  - Joint injury [Unknown]
  - Pain in extremity [Unknown]
  - Insomnia [Not Recovered/Not Resolved]
  - Influenza like illness [Recovered/Resolved]
  - Muscle tightness [Recovered/Resolved with Sequelae]
  - Muscle spasms [Recovered/Resolved]
  - Vomiting [Recovered/Resolved]
  - Arthralgia [Not Recovered/Not Resolved]
